FAERS Safety Report 5262500-4 (Version None)
Quarter: 2007Q1

REPORT INFORMATION
  Report Type: 
  Country: None (occurrence: None)
  Receive Date: 20070312
  Receipt Date: 20070308
  Transmission Date: 20070707
  Serious: Yes (Death)
  Sender: FDA-Public Use
  Company Number: US-BRISTOL-MYERS SQUIBB COMPANY-13707799

PATIENT
  Age: 83 Year
  Sex: Female
  Weight: 82 kg

DRUGS (12)
  1. GLUCOPHAGE [Suspect]
     Route: 048
  2. PLAVIX [Concomitant]
  3. SYNTHROID [Concomitant]
  4. ASPIRIN [Concomitant]
  5. AVANDIA [Concomitant]
  6. ATENOLOL [Concomitant]
  7. SPIRONOLACTONE [Concomitant]
  8. HYDROCHLOROTHIAZIDE [Concomitant]
  9. COZAAR [Concomitant]
  10. ZOCOR [Concomitant]
  11. MACROBID [Concomitant]
  12. MULTIVITAMINS + IRON [Concomitant]

REACTIONS (3)
  - CARDIAC FAILURE CONGESTIVE [None]
  - RENAL FAILURE ACUTE [None]
  - SEPSIS [None]
